FAERS Safety Report 8792402 (Version 1)
Quarter: 2012Q4

REPORT INFORMATION
  Report Type: 
  Country: FR (occurrence: FR)
  Receive Date: 20120918
  Receipt Date: 20120918
  Transmission Date: 20130627
  Serious: Yes (Hospitalization)
  Sender: FDA-Public Use
  Company Number: PHHY2012FR080284

PATIENT
  Age: 68 Year
  Sex: Male

DRUGS (7)
  1. TRILEPTAL [Suspect]
     Dosage: 3 DF daily
     Route: 048
     Dates: start: 201202
  2. TRILEPTAL [Suspect]
     Dosage: 600 mg, TID
     Route: 048
  3. TRILEPTAL [Suspect]
     Dosage: 400 mg, TID
     Route: 048
  4. URBANYL [Concomitant]
     Dosage: 5 mg daily
  5. ZOLPIDEM [Concomitant]
     Dosage: 0.5 DF daily
  6. SERESTA [Concomitant]
     Dosage: 5 mg daily
  7. KARDEGIC [Concomitant]
     Dosage: 300 mg daily

REACTIONS (2)
  - Hepatocellular injury [Recovered/Resolved]
  - Status epilepticus [Unknown]
